FAERS Safety Report 17651627 (Version 1)
Quarter: 2020Q2

REPORT INFORMATION
  Report Type: Spontaneous
  Country: US (occurrence: US)
  Receive Date: 20200409
  Receipt Date: 20200409
  Transmission Date: 20200713
  Serious: Yes (Hospitalization)
  Sender: FDA-Public Use
  Company Number: None

PATIENT
  Age: 71 Year
  Sex: Male

DRUGS (1)
  1. BEVACIZUMAB (BEVACIZUMAB 25MG/ML INJ,4ML [Suspect]
     Active Substance: BEVACIZUMAB
     Indication: RECTAL CANCER METASTATIC
     Dosage: ?          OTHER ROUTE:IV?
     Route: 042
     Dates: start: 20180402

REACTIONS (8)
  - Mucosal inflammation [None]
  - Gastric haemorrhage [None]
  - Vomiting [None]
  - Haemoptysis [None]
  - Nausea [None]
  - Hiccups [None]
  - Muscle twitching [None]
  - Insomnia [None]

NARRATIVE: CASE EVENT DATE: 20180402
